FAERS Safety Report 6249768-2 (Version None)
Quarter: 2009Q2

REPORT INFORMATION
  Report Type: 
  Country: None (occurrence: None)
  Receive Date: 20090629
  Receipt Date: 20090624
  Transmission Date: 20091009
  Serious: Yes (Hospitalization)
  Sender: FDA-Public Use
  Company Number: DE-ABBOTT-09P-062-0581629-00

PATIENT
  Sex: Female
  Weight: 53 kg

DRUGS (4)
  1. HUMIRA [Suspect]
     Indication: RHEUMATOID ARTHRITIS
     Route: 058
     Dates: start: 20050101
  2. METHOTREXATE [Concomitant]
     Indication: RHEUMATOID ARTHRITIS
     Dosage: 2 X 7.5 MG PER WEEK
     Route: 048
  3. PREDNISOLONE [Concomitant]
     Indication: RHEUMATOID ARTHRITIS
     Dosage: 5-30 MG DAILY
     Route: 048
     Dates: end: 20090601
  4. ACTONEL [Concomitant]
     Indication: OSTEOPOROSIS
     Dosage: 1 TAB PER WEEK
     Route: 048
     Dates: start: 20080101

REACTIONS (1)
  - OSTEOARTHRITIS [None]
